FAERS Safety Report 7474942-7 (Version None)
Quarter: 2011Q2

REPORT INFORMATION
  Report Type: 
  Country: None (occurrence: None)
  Receive Date: 20110512
  Receipt Date: 20090126
  Transmission Date: 20111010
  Serious: Yes (Hospitalization, Other)
  Sender: FDA-Public Use
  Company Number: US-BAYER-200911845NA

PATIENT
  Age: 59 Year
  Sex: Male
  Weight: 56.689 kg

DRUGS (26)
  1. ACETYLSALICYLIC ACID SRT [Concomitant]
     Indication: PRODUCT USED FOR UNKNOWN INDICATION
     Dosage: 81 MG, UNK
     Route: 048
  2. VALIUM [Concomitant]
     Indication: PRODUCT USED FOR UNKNOWN INDICATION
     Dosage: 2 MG, UNK
     Route: 048
  3. VANCOMYCIN [Concomitant]
     Indication: PRODUCT USED FOR UNKNOWN INDICATION
     Dosage: 1 G, UNK
     Dates: start: 20031031
  4. TRASYLOL [Suspect]
  5. TOPROL-XL [Concomitant]
     Indication: PRODUCT USED FOR UNKNOWN INDICATION
     Dosage: 50 MG, UNK
     Route: 048
  6. ISOSORBIDE [ISOSORBIDE] [Concomitant]
     Indication: PRODUCT USED FOR UNKNOWN INDICATION
     Dosage: 30 MG, UNK
     Route: 048
  7. ZOCOR [Concomitant]
     Indication: PRODUCT USED FOR UNKNOWN INDICATION
     Dosage: 20 MG, UNK
     Route: 048
  8. MAGNESIUM SULFATE [Concomitant]
     Indication: PRODUCT USED FOR UNKNOWN INDICATION
     Dosage: UNK
     Dates: start: 20031031
  9. ALTACE [Concomitant]
     Indication: PRODUCT USED FOR UNKNOWN INDICATION
     Dosage: 5 MG, UNK
     Route: 048
     Dates: start: 20030101
  10. COUMADIN [Concomitant]
     Indication: PRODUCT USED FOR UNKNOWN INDICATION
     Dosage: VARIABLE
     Route: 048
  11. RANITIDINE [Concomitant]
     Indication: PRODUCT USED FOR UNKNOWN INDICATION
     Dosage: 150 MG, UNK
     Route: 048
     Dates: start: 20040101
  12. FORANE [Concomitant]
     Indication: PRODUCT USED FOR UNKNOWN INDICATION
     Dosage: 0.5, 1.2, 1.0, 1.0, 1.0
     Dates: start: 20031031
  13. TRASYLOL [Suspect]
     Indication: AORTIC VALVE REPLACEMENT
     Dosage: 100ML LOADING DOSE
     Route: 042
     Dates: start: 20031031, end: 20031031
  14. VERSED [Concomitant]
     Indication: PRODUCT USED FOR UNKNOWN INDICATION
     Dosage: 10
     Dates: start: 20031031
  15. TRASYLOL [Suspect]
     Indication: CORONARY ARTERY BYPASS
     Dosage: 1ML INITIAL (TEST) DOSE
     Route: 042
     Dates: start: 20031031, end: 20031031
  16. DOPAMINE HCL [Concomitant]
     Indication: PRODUCT USED FOR UNKNOWN INDICATION
     Dosage: UNK
     Dates: start: 20031031
  17. PAVULON [Concomitant]
     Indication: PRODUCT USED FOR UNKNOWN INDICATION
     Dosage: 10
     Dates: start: 20031031
  18. PLATELETS [Concomitant]
     Dosage: 1 U, UNK
  19. TRASYLOL [Suspect]
     Dosage: 25ML/HOUR DRIP
     Route: 042
     Dates: start: 20031031, end: 20031031
  20. LEXAPRO [Concomitant]
     Indication: PRODUCT USED FOR UNKNOWN INDICATION
     Dosage: 5 MG, UNK
     Route: 048
     Dates: start: 20030101
  21. NITROGLYCERIN [Concomitant]
     Indication: PRODUCT USED FOR UNKNOWN INDICATION
     Dosage: 0.4 MG, UNK
     Route: 060
  22. ATIVAN [Concomitant]
     Indication: PRODUCT USED FOR UNKNOWN INDICATION
     Dosage: 2
     Dates: start: 20031031
  23. KEPPRA [Concomitant]
     Indication: CONVULSION
     Dosage: 500 MG, UNK
     Route: 048
     Dates: start: 20070101
  24. MECLIZINE [Concomitant]
     Indication: PRODUCT USED FOR UNKNOWN INDICATION
     Dosage: 25 MG, UNK
     Route: 048
     Dates: start: 20010101
  25. SYNTHROID [Concomitant]
     Indication: PRODUCT USED FOR UNKNOWN INDICATION
     Dosage: 50 MCG
     Route: 048
  26. FENTANYL [Concomitant]
     Indication: PRODUCT USED FOR UNKNOWN INDICATION
     Dosage: 15, 20
     Dates: start: 20031031

REACTIONS (14)
  - DISTURBANCE IN ATTENTION [None]
  - STRESS [None]
  - RENAL IMPAIRMENT [None]
  - FEAR [None]
  - MOTOR DYSFUNCTION [None]
  - AMNESIA [None]
  - ANHEDONIA [None]
  - ANXIETY [None]
  - RENAL INJURY [None]
  - EMOTIONAL DISTRESS [None]
  - PAIN [None]
  - EMBOLIC STROKE [None]
  - UNEVALUABLE EVENT [None]
  - INJURY [None]
